FAERS Safety Report 13033174 (Version 1)
Quarter: 2016Q4

REPORT INFORMATION
  Report Type: Spontaneous
  Country: US (occurrence: US)
  Receive Date: 20161215
  Receipt Date: 20161215
  Transmission Date: 20170207
  Serious: No
  Sender: FDA-Public Use
  Company Number: US-BAUSCH-BL-2016-020216

PATIENT
  Sex: Male

DRUGS (1)
  1. DEXAMETHASONE/TOBRAMYCIN SULFATE [Suspect]
     Active Substance: DEXAMETHASONE\TOBRAMYCIN
     Indication: EYE INFECTION
     Route: 065
     Dates: start: 201603

REACTIONS (1)
  - Drug ineffective [Unknown]
